FAERS Safety Report 5236272-3 (Version None)
Quarter: 2007Q1

REPORT INFORMATION
  Report Type: 
  Country: None (occurrence: None)
  Receive Date: 20061208
  Receipt Date: 20050323
  Transmission Date: 20070707
  Serious: Yes (Other)
  Sender: FDA-Public Use
  Company Number: 2005UW04823

PATIENT
  Age: 80 Year
  Sex: Female

DRUGS (1)
  1. CRESTOR [Suspect]
     Dates: start: 20040101

REACTIONS (3)
  - ASTHENIA [None]
  - GAIT DISTURBANCE [None]
  - MUSCULAR WEAKNESS [None]
